FAERS Safety Report 5219182-7 (Version None)
Quarter: 2007Q1

REPORT INFORMATION
  Report Type: 
  Country: None (occurrence: None)
  Receive Date: 20070122
  Receipt Date: 20070112
  Transmission Date: 20070707
  Serious: Yes (Hospitalization, Other)
  Sender: FDA-Public Use
  Company Number: AUWYE146114JAN07

PATIENT
  Sex: Female

DRUGS (4)
  1. EFFEXOR XR [Suspect]
     Indication: ANXIETY
     Dosage: 37.5 MG 1X PER 1 DAY; TRANSPLACENTAL; SEE IMAGE
     Route: 064
  2. EFFEXOR XR [Suspect]
     Indication: DEPRESSION
     Dosage: 37.5 MG 1X PER 1 DAY; TRANSPLACENTAL; SEE IMAGE
     Route: 064
  3. EFFEXOR XR [Suspect]
     Indication: ANXIETY
     Dosage: 37.5 MG 1X PER 1 DAY; TRANSPLACENTAL; SEE IMAGE
     Route: 064
     Dates: start: 20050401
  4. EFFEXOR XR [Suspect]
     Indication: DEPRESSION
     Dosage: 37.5 MG 1X PER 1 DAY; TRANSPLACENTAL; SEE IMAGE
     Route: 064
     Dates: start: 20050401

REACTIONS (4)
  - DRUG EXPOSURE DURING PREGNANCY [None]
  - EYE INFECTION [None]
  - NEONATAL DISORDER [None]
  - WEIGHT DECREASE NEONATAL [None]
